FAERS Safety Report 15280278 (Version 1)
Quarter: 2018Q3

REPORT INFORMATION
  Report Type: Spontaneous
  Country: CH (occurrence: CH)
  Receive Date: 20180815
  Receipt Date: 20180815
  Transmission Date: 20181010
  Serious: Yes (Death)
  Sender: FDA-Public Use
  Company Number: -ASTRAZENECA-2018SF01220

PATIENT
  Age: 847 Month
  Sex: Male

DRUGS (2)
  1. TAGRISSO [Suspect]
     Active Substance: OSIMERTINIB
     Route: 048
     Dates: start: 20180713, end: 20180721
  2. CLEXANE [Suspect]
     Active Substance: ENOXAPARIN SODIUM
     Dosage: 40.0MG UNKNOWN
     Route: 058
     Dates: start: 20180611, end: 20180708

REACTIONS (3)
  - Heparin-induced thrombocytopenia [Fatal]
  - Thrombocytopenia [Fatal]
  - Purpura [Fatal]

NARRATIVE: CASE EVENT DATE: 201807
